FAERS Safety Report 10973406 (Version 1)
Quarter: 2015Q1

REPORT INFORMATION
  Report Type: Spontaneous
  Country: None (occurrence: None)
  Receive Date: 20150226
  Receipt Date: 20150226
  Transmission Date: 20150721
  Serious: No
  Sender: FDA-Public Use
  Company Number: TPA2009A02296

PATIENT
  Age: 52 Year
  Sex: Male
  Weight: 189.6 kg

DRUGS (9)
  1. LISINOPRIL (LISINOPRIL) [Concomitant]
     Active Substance: LISINOPRIL
  2. WARFARIN (WARFARIN) [Concomitant]
     Active Substance: WARFARIN
  3. ANDROGEL [Concomitant]
     Active Substance: TESTOSTERONE
  4. ALLOPURINOL (ALLOPURINOL) [Concomitant]
     Active Substance: ALLOPURINOL
  5. HCTZ (HYDROCHLOROTHIAZIDE) [Concomitant]
     Active Substance: HYDROCHLOROTHIAZIDE
  6. DIGOXIN (DIGOXIN) [Concomitant]
     Active Substance: DIGOXIN
  7. IBUPROFEN (IBUPROFEN) [Concomitant]
     Active Substance: IBUPROFEN
  8. COLCHICINE (COLCHICINE) [Concomitant]
     Active Substance: COLCHICINE
  9. ULORIC [Suspect]
     Active Substance: FEBUXOSTAT
     Indication: GOUT
     Route: 048
     Dates: start: 20090712

REACTIONS (2)
  - Large intestine polyp [None]
  - Blood uric acid increased [None]

NARRATIVE: CASE EVENT DATE: 20090730
